FAERS Safety Report 4459465-1 (Version None)
Quarter: 2004Q3

REPORT INFORMATION
  Report Type: 
  Country: None (occurrence: None)
  Receive Date: 20040927
  Receipt Date: 20040809
  Transmission Date: 20050211
  Serious: Yes (Hospitalization)
  Sender: FDA-Public Use
  Company Number: HU-ABBOTT-04P-076-0270077-00

PATIENT
  Sex: Male
  Weight: 97.5 kg

DRUGS (13)
  1. SIBUTRAMINE (BLINDED) [Suspect]
     Indication: OBESITY
     Route: 048
     Dates: start: 20040401
  2. INSULIN [Concomitant]
     Indication: DIABETES MELLITUS NON-INSULIN-DEPENDENT
     Dates: start: 20031030
  3. ACENOCOUMAROL [Concomitant]
     Indication: CARDIAC ANEURYSM
     Dates: start: 20040210
  4. METOPROLOL [Concomitant]
     Indication: MYOCARDIAL ISCHAEMIA
     Dates: start: 20031030
  5. TRIMETAZIDINE [Concomitant]
     Indication: TRANSIENT ISCHAEMIC ATTACK
     Dates: start: 20031030
  6. FAMOTIDINE [Concomitant]
     Indication: HYPERCHLORHYDRIA
     Dates: start: 20031030
  7. SIMVASTATIN [Concomitant]
     Indication: DYSLIPIDAEMIA
     Dates: start: 20031030
  8. HUMULIN R [Concomitant]
     Indication: DIABETES MELLITUS NON-INSULIN-DEPENDENT
     Dosage: 12 UNITS/12 UNITS/10 UNITS
     Dates: start: 20031030
  9. DIGOXIN [Concomitant]
     Indication: CARDIAC FAILURE CONGESTIVE
     Dates: start: 20031030
  10. POTASSIUM CHLORIDE [Concomitant]
     Indication: ELECTROLYTE SUBSTITUTION THERAPY
     Dates: start: 20031030
  11. RAMIPRIL [Concomitant]
     Indication: CARDIAC FAILURE CONGESTIVE
     Dates: start: 20031030
  12. ISOSORBIDE MONONITRATE [Concomitant]
     Indication: MYOCARDIAL ISCHAEMIA
     Dates: start: 20031030
  13. FUROSEMIDE [Concomitant]
     Indication: CARDIAC FAILURE CONGESTIVE
     Dates: start: 20031030, end: 20040807

REACTIONS (1)
  - HYDROTHORAX [None]
